FAERS Safety Report 5023583-X (Version None)
Quarter: 2006Q2

REPORT INFORMATION
  Report Type: 
  Country: None (occurrence: None)
  Receive Date: 20060606
  Receipt Date: 20060526
  Transmission Date: 20061013
  Serious: Yes (Death)
  Sender: FDA-Public Use
  Company Number: RS006060-J

PATIENT
  Age: 89 Year
  Sex: Male

DRUGS (9)
  1. RABEPRAZOLE SODIUM [Suspect]
     Indication: REFLUX OESOPHAGITIS
     Dosage: 10 MG, 1 IN 1 D, ORAL
     Route: 048
     Dates: start: 20060422, end: 20060430
  2. OMEPRAZOLE [Suspect]
     Indication: REFLUX OESOPHAGITIS
     Dosage: 20 MG, 1 IN 1 D,  INTRAVENOUS INFUSION
     Dates: start: 20060420, end: 20060422
  3. SELBEX (TEPRENONE) [Concomitant]
  4. MAGMITT (MAGNESIUM OXIDE) [Concomitant]
  5. HALTHROW (TAMSULOSIN HYDROCHLORIDE) [Concomitant]
  6. FLUMARIN (FLOMOXEF SODIUM) [Concomitant]
  7. PL [Concomitant]
  8. ADONA (CARBAZOCHROME SODIUM SULFONATE) [Concomitant]
  9. ALESION (EPINASTINE HYDROCHLORIDE) [Concomitant]

REACTIONS (3)
  - GASTROINTESTINAL HAEMORRHAGE [None]
  - HAEMATEMESIS [None]
  - PNEUMONIA [None]
